FAERS Safety Report 4830687-0 (Version None)
Quarter: 2005Q4

REPORT INFORMATION
  Report Type: 
  Country: None (occurrence: None)
  Receive Date: 20051114
  Receipt Date: 20051103
  Transmission Date: 20060501
  Serious: Yes (Hospitalization, Other)
  Sender: FDA-Public Use
  Company Number: HQWYE427204NOV05

PATIENT
  Age: 20 Year
  Sex: Female

DRUGS (2)
  1. ADVIL [Suspect]
     Indication: TOOTHACHE
     Dosage: ORAL
     Route: 048
  2. RODOGYL (METRONIDAZOLE/SPIRAMYCIN, ) [Suspect]
     Indication: TOOTHACHE
     Dosage: ORAL
     Route: 048

REACTIONS (9)
  - BLOOD IMMUNOGLOBULIN E INCREASED [None]
  - IATROGENIC INJURY [None]
  - INSOMNIA [None]
  - LYMPHOCYTE COUNT ABNORMAL [None]
  - MONOCYTE COUNT ABNORMAL [None]
  - PRURITUS GENERALISED [None]
  - PYREXIA [None]
  - URTICARIA GENERALISED [None]
  - WHITE BLOOD CELL COUNT ABNORMAL [None]
